FAERS Safety Report 19268491 (Version 1)
Quarter: 2021Q2

REPORT INFORMATION
  Report Type: Spontaneous
  Country: PR (occurrence: PR)
  Receive Date: 20210518
  Receipt Date: 20210518
  Transmission Date: 20210717
  Serious: No
  Sender: FDA-Public Use
  Company Number: PR-VIFOR (INTERNATIONAL) INC.-VIT-2019-04762

PATIENT
  Age: 73 Year
  Sex: Female
  Weight: 79.5 kg

DRUGS (2)
  1. HECTOROL [Concomitant]
     Active Substance: DOXERCALCIFEROL
  2. MIRCERA [Suspect]
     Active Substance: METHOXY POLYETHYLENE GLYCOL-EPOETIN BETA
     Indication: PRODUCT USED FOR UNKNOWN INDICATION
     Dosage: LATEST MIRCERA DOSE
     Dates: start: 20160412, end: 20160419

REACTIONS (2)
  - Drug hypersensitivity [Recovered/Resolved]
  - Dyspnoea [Recovered/Resolved]

NARRATIVE: CASE EVENT DATE: 201604
